FAERS Safety Report 7367529-8 (Version None)
Quarter: 2011Q1

REPORT INFORMATION
  Report Type: 
  Country: None (occurrence: None)
  Receive Date: 20110322
  Receipt Date: 20090930
  Transmission Date: 20110831
  Serious: Yes (Hospitalization, Other)
  Sender: FDA-Public Use
  Company Number: US-BAYER-200934439NA

PATIENT
  Sex: Male
  Weight: 107.94 kg

DRUGS (46)
  1. TRASYLOL [Suspect]
     Dosage: 50 ML, Q1HR
     Dates: start: 20011204, end: 20011204
  2. NITROGLYCERIN [Concomitant]
     Dosage: 0.4 MG, PRN
     Route: 060
     Dates: start: 19970908
  3. CALCIUM CARBONATE [Concomitant]
     Dosage: 1300 MG, QD
     Route: 048
     Dates: start: 19990930
  4. LIDOCAINE [Concomitant]
     Dosage: 75 MG, PRN
     Dates: start: 20011205, end: 20011208
  5. MORPHINE [Concomitant]
     Dosage: 2-8 MG EVERY 1-3 HOURS AS NEEDED
     Route: 042
     Dates: start: 20011204, end: 20011208
  6. PROTAMINE SULFATE [Concomitant]
     Dosage: 200 MG, UNK
     Route: 042
     Dates: start: 20011204, end: 20011204
  7. CEFUROXIME [Concomitant]
     Dosage: 1500 MG, OVER 30 MINUTES
     Route: 042
     Dates: start: 20011204, end: 20011205
  8. SODIUM NITROPRUSSIDE [Concomitant]
     Dosage: 100 MG, UNK
     Route: 042
     Dates: start: 20011204, end: 20011205
  9. ZOLPIDEM [Concomitant]
     Dosage: 10 MG, UNK
     Route: 048
     Dates: start: 19980318
  10. MIDAZOLAM [Concomitant]
     Dosage: 2 MG, UNK
     Route: 042
     Dates: start: 20011204, end: 20011204
  11. ETOMIDATE [Concomitant]
     Dosage: UNK
     Route: 042
     Dates: start: 20011204, end: 20011204
  12. VIOXX [Concomitant]
     Dosage: 25 MG, QD
     Route: 048
     Dates: start: 20010529, end: 20040817
  13. VITAMIN E [Concomitant]
     Dosage: 800 IU, QD
     Route: 048
     Dates: start: 19990224
  14. DICLOFENAC [Concomitant]
     Dosage: 75 MG, BID
     Route: 048
     Dates: start: 19991116
  15. ZINACEF [Concomitant]
     Dosage: 1.5 G, UNK
     Route: 042
     Dates: start: 20011204
  16. PAPAVERINE [Concomitant]
     Dosage: 2 ML, UNK
     Dates: start: 20011204, end: 20011204
  17. CELEBREX [Concomitant]
     Dosage: 100 MG, QD
     Route: 048
     Dates: start: 20020219, end: 20030220
  18. COMPAZINE [Concomitant]
     Dosage: 10 MG, BID
     Route: 048
  19. REGULAR INSULIN [Concomitant]
     Dosage: 100 U, UNK
     Route: 042
     Dates: start: 20011204, end: 20011205
  20. VERSED [Concomitant]
     Dosage: UNK
     Route: 042
     Dates: start: 20011204, end: 20011204
  21. TRIAMTERENE AND HYDROCHLOROTHIAZIDE [Concomitant]
     Dosage: 50/75 MG, 1/2 TAB DAILY TO TWICE DAILY
     Dates: start: 20000508
  22. TRASYLOL [Suspect]
     Dosage: 60 ML, Q1HR
     Dates: start: 20011204, end: 20011204
  23. TRAMADOL [Concomitant]
     Dosage: 1-2 TABS 3-4 TIMES DAILY OR EVERY 6-8 HOURS AS NEEDED
     Dates: start: 19981229
  24. FELODIPINE [Concomitant]
     Dosage: 5-10 MG QD
     Route: 048
     Dates: start: 19990224
  25. ISOSORBIDE DINITRATE [Concomitant]
     Dosage: 20 MG 1 TO 3 TIMES DAILY
     Route: 048
     Dates: start: 19970709
  26. QUININE SULFATE [Concomitant]
     Dosage: 324 MG, HS
     Route: 048
     Dates: start: 20001018
  27. SEVOFLURANE [Concomitant]
     Dosage: 1.1-1.5
     Route: 017
     Dates: start: 20011204, end: 20011204
  28. ALBUMIN (HUMAN) [Concomitant]
     Dosage: 20-250 ML, 12.5 ML/HR
     Dates: start: 20011204, end: 20011204
  29. POTASSIUM CHLORIDE [Concomitant]
     Dosage: 20 MEQ, UNK
     Route: 042
     Dates: start: 20011204, end: 20011204
  30. TORADOL [Concomitant]
     Dosage: UNK
     Route: 048
     Dates: start: 20040101, end: 20090101
  31. TRASYLOL [Suspect]
     Indication: CORONARY ARTERY BYPASS
     Dosage: 200 ML, ONCE
     Route: 042
     Dates: start: 20011204, end: 20011204
  32. ACETYLSALICYLIC ACID SRT [Concomitant]
     Dosage: 81-325 MG DAILY
     Route: 048
     Dates: start: 19970822
  33. REGULAR INSULIN [Concomitant]
     Dosage: 0-5 UNITS TWICE DAILY AND PRN TO 4 TIMES DAILY PER SLIDING SCALE
     Route: 058
     Dates: start: 19990224
  34. TERBINAFINE HCL [Concomitant]
     Dosage: 125 MG, QD
     Route: 048
     Dates: start: 19980310
  35. HEPARIN [Concomitant]
     Dosage: 40000 U, UNK
     Route: 042
     Dates: start: 20011204
  36. MANNITOL [Concomitant]
     Dosage: 12.5 G, UNK
     Route: 042
     Dates: start: 20011204, end: 20011204
  37. TRASYLOL [Suspect]
     Dosage: 200 ML, PRIME DOSE
     Dates: start: 20011204, end: 20011204
  38. DARVOCET-N 100 [Concomitant]
     Dosage: EVERY 4-6 HOURS, PRN
     Route: 048
     Dates: start: 19970709, end: 20070808
  39. CLOTRIMAZOLE [Concomitant]
     Dosage: 2 DROPS BID
     Route: 061
     Dates: start: 19990809
  40. LASIX [Concomitant]
     Dosage: 20-40 MG DAILY OR AS NEEDED, ORAL/IV
     Dates: start: 19990419
  41. NICARDIPINE HYDROCHLORIDE [Concomitant]
     Dosage: 1 MG, UNK
     Route: 042
     Dates: start: 20011204
  42. SOLU-MEDROL [Concomitant]
     Dosage: 0.5 G, UNK
     Route: 042
     Dates: start: 20011204
  43. NPH INSULIN [Concomitant]
     Dosage: 15-60 UNITS 2 TO 4 TIMES DAILY
     Dates: start: 19970512
  44. FENTANYL [Concomitant]
     Dosage: 100-250 MCG
     Route: 042
  45. MAGNESIUM SULFATE [Concomitant]
     Dosage: 1-2 GM PRN
     Route: 042
     Dates: start: 20011204
  46. ESMOLOL [Concomitant]
     Dosage: 2.5 G, UNK
     Route: 042
     Dates: start: 20011204, end: 20011204

REACTIONS (10)
  - RENAL IMPAIRMENT [None]
  - UNEVALUABLE EVENT [None]
  - RENAL FAILURE [None]
  - INJURY [None]
  - EMOTIONAL DISTRESS [None]
  - PAIN [None]
  - STRESS [None]
  - ANXIETY [None]
  - FEAR [None]
  - RENAL INJURY [None]
